FAERS Safety Report 11866423 (Version 1)
Quarter: 2015Q4

REPORT INFORMATION
  Report Type: Spontaneous
  Country: US (occurrence: US)
  Receive Date: 20151224
  Receipt Date: 20151224
  Transmission Date: 20160305
  Serious: Yes (Death)
  Sender: FDA-Public Use
  Company Number: US-ORIENT PHARMA CO., LTD.-2015ORT00004

PATIENT
  Age: 47 Year
  Sex: Female

DRUGS (1)
  1. CARISOPRODOL. [Suspect]
     Active Substance: CARISOPRODOL
     Dosage: UNK
     Route: 065

REACTIONS (4)
  - Hyperreflexia [Fatal]
  - Coma [Fatal]
  - Depressed level of consciousness [None]
  - Tremor [None]
